FAERS Safety Report 6533375-8 (Version None)
Quarter: 2010Q1

REPORT INFORMATION
  Report Type: 
  Country: None (occurrence: None)
  Receive Date: 20100111
  Receipt Date: 20100104
  Transmission Date: 20100710
  Serious: Yes (Other)
  Sender: FDA-Public Use
  Company Number: NL-ELI_LILLY_AND_COMPANY-NL200911003436

PATIENT
  Sex: Female

DRUGS (6)
  1. FORTEO [Suspect]
     Indication: OSTEOPOROSIS
     Dosage: 20 UG, UNK
     Dates: start: 20081023
  2. NEXIUM [Concomitant]
     Indication: DYSPEPSIA
     Dosage: 40 MG, DAILY (1/D)
  3. PREDNISON [Concomitant]
     Dosage: 20 MG, DAILY (1/D)
     Dates: start: 20081024
  4. ENTOCORD [Concomitant]
     Dosage: 3 MG, 2/D
  5. CELLCEPT [Concomitant]
     Indication: AUTOIMMUNE HEPATITIS
     Dosage: UNK, UNKNOWN
  6. CALCI CHEW D3 /00944201/ [Concomitant]
     Dosage: 400 / 500 MG, 2/D

REACTIONS (1)
  - VISUAL ACUITY REDUCED [None]
